FAERS Safety Report 8658012 (Version 2)
Quarter: 2012Q4

REPORT INFORMATION
  Report Type: 
  Country: US (occurrence: US)
  Receive Date: 20120710
  Receipt Date: 20120928
  Transmission Date: 20130627
  Serious: Yes (Hospitalization)
  Sender: FDA-Public Use
  Company Number: US-BAYER-2012-068061

PATIENT
  Age: 19 Year
  Sex: Female

DRUGS (2)
  1. YAZ [Suspect]
     Indication: MENORRHAGIA
     Dosage: UNK
     Dates: start: 201005
  2. YASMIN [Suspect]
     Dosage: UNK
     Dates: start: 201005

REACTIONS (5)
  - Pulmonary embolism [None]
  - Pain [None]
  - Injury [None]
  - Fear of disease [None]
  - Pain [None]
